FAERS Safety Report 9704851 (Version 3)
Quarter: 2014Q1

REPORT INFORMATION
  Report Type: Spontaneous
  Country: US (occurrence: US)
  Receive Date: 20131122
  Receipt Date: 20140221
  Transmission Date: 20141002
  Serious: Yes (Life-Threatening)
  Sender: FDA-Public Use
  Company Number: US-ROCHE-1307006

PATIENT
  Age: 50 Year
  Sex: Female
  Weight: 91.4 kg

DRUGS (19)
  1. XOLAIR [Suspect]
     Indication: ASTHMA
     Dosage: X1
     Route: 058
     Dates: start: 20131115, end: 20131115
  2. NASONEX [Concomitant]
     Route: 045
     Dates: start: 20130729
  3. CLARITIN [Concomitant]
     Dosage: X2
     Route: 065
  4. ALBUTEROL [Concomitant]
     Dosage: X1
     Route: 065
  5. PREDNISONE [Concomitant]
     Dosage: X1
     Route: 048
  6. ZYRTEC [Concomitant]
     Route: 048
     Dates: start: 20131116
  7. SINGULAIR [Concomitant]
     Route: 048
     Dates: start: 20131014
  8. AMBIEN [Concomitant]
     Route: 048
     Dates: start: 20131001
  9. FOLBIC [Concomitant]
     Route: 048
     Dates: start: 20130906
  10. REGLAN [Concomitant]
     Route: 048
     Dates: start: 20130729
  11. PRILOSEC [Concomitant]
     Route: 048
     Dates: start: 20130729
  12. SYMBICORT [Concomitant]
     Dosage: 160/4.5
     Route: 065
     Dates: start: 20130729
  13. ASTELIN [Concomitant]
     Route: 045
     Dates: start: 20130729
  14. COMBIVENT [Concomitant]
     Dosage: 2 PUFFS INHALED
     Route: 065
     Dates: start: 20130729
  15. BUSPAR [Concomitant]
     Route: 048
     Dates: start: 20130729
  16. ANTIVERT [Concomitant]
     Route: 048
     Dates: start: 20100121
  17. ESTRADIOL [Concomitant]
     Route: 061
     Dates: start: 20080606
  18. CALTRATE [Concomitant]
     Route: 065
  19. CLIMARA [Concomitant]

REACTIONS (11)
  - Anaphylactic reaction [Recovered/Resolved]
  - Dyspnoea [Unknown]
  - Erythema [Unknown]
  - Pruritus [Unknown]
  - Nasal discomfort [Unknown]
  - Urticaria [Unknown]
  - Bronchospasm [Unknown]
  - Paraesthesia oral [Unknown]
  - Paraesthesia oral [Unknown]
  - Pruritus [Unknown]
  - Anxiety [Unknown]
